FAERS Safety Report 4334556-4 (Version None)
Quarter: 2004Q2

REPORT INFORMATION
  Report Type: 
  Country: None (occurrence: None)
  Receive Date: 20040407
  Receipt Date: 20040318
  Transmission Date: 20050107
  Serious: Yes (Other)
  Sender: FDA-Public Use
  Company Number: DE-GLAXOSMITHKLINE-D0043432A

PATIENT
  Age: 73 Year
  Sex: Male
  Weight: 81 kg

DRUGS (5)
  1. AVODART [Suspect]
     Indication: BENIGN PROSTATIC HYPERPLASIA
     Dosage: 1TAB PER DAY
     Route: 048
     Dates: start: 20031209, end: 20040207
  2. DELIX [Concomitant]
     Dosage: .5TAB PER DAY
     Route: 048
  3. ASS [Concomitant]
     Dosage: 1TAB PER DAY
     Route: 048
  4. BISOPROLOL [Concomitant]
     Dosage: 1TAB PER DAY
     Route: 048
  5. SIMVASTATINE [Concomitant]
     Dosage: .5TAB PER DAY
     Route: 048

REACTIONS (1)
  - DERMATITIS ALLERGIC [None]
